FAERS Safety Report 5044293-9 (Version None)
Quarter: 2006Q2

REPORT INFORMATION
  Report Type: 
  Country: None (occurrence: None)
  Receive Date: 20060629
  Receipt Date: 20060615
  Transmission Date: 20061013
  Serious: Yes (Other)
  Sender: FDA-Public Use
  Company Number: 2006PV015674

PATIENT
  Age: 60 Year
  Sex: Female
  Weight: 97.0698 kg

DRUGS (2)
  1. BYETTA [Suspect]
     Indication: DIABETES MELLITUS NON-INSULIN-DEPENDENT
     Dosage: 5 MCG;BID;SC
     Route: 058
     Dates: start: 20050101
  2. GLYBURIDE [Concomitant]

REACTIONS (21)
  - ABASIA [None]
  - CONDITION AGGRAVATED [None]
  - CONTUSION [None]
  - DECREASED APPETITE [None]
  - FALL [None]
  - HAIR TEXTURE ABNORMAL [None]
  - HAIRY CELL LEUKAEMIA [None]
  - HYPERHIDROSIS [None]
  - HYPOTRICHOSIS [None]
  - INCREASED APPETITE [None]
  - MASS [None]
  - ONYCHOCLASIS [None]
  - PARAESTHESIA [None]
  - THERAPEUTIC RESPONSE UNEXPECTED [None]
  - THERMAL BURN [None]
  - THYROID NEOPLASM [None]
  - VAGINAL BURNING SENSATION [None]
  - VAGINAL DISORDER [None]
  - WEIGHT DECREASED [None]
  - WEIGHT FLUCTUATION [None]
  - WHITE BLOOD CELL COUNT ABNORMAL [None]
